FAERS Safety Report 10519555 (Version 2)
Quarter: 2014Q4

REPORT INFORMATION
  Report Type: Report from Study
  Country: JP (occurrence: JP)
  Receive Date: 20141015
  Receipt Date: 20141120
  Transmission Date: 20150528
  Serious: Yes (Death, Other)
  Sender: FDA-Public Use
  Company Number: JP-OTSUKA-JP-2014-18108

PATIENT

DRUGS (5)
  1. HEPARIN AL [Concomitant]
     Indication: PRODUCT USED FOR UNKNOWN INDICATION
     Dosage: 10 KIU IU(1000S), DAILY DOSE
     Route: 042
     Dates: end: 20140902
  2. SAMSCA [Suspect]
     Active Substance: TOLVAPTAN
     Indication: OEDEMA DUE TO CARDIAC DISEASE
     Dosage: 7.5 MG MILLIGRAM(S), QAM
     Route: 048
     Dates: start: 20140829, end: 20140902
  3. LASIX M [Concomitant]
     Active Substance: FUROSEMIDE
     Indication: CARDIAC FAILURE
     Dosage: 60 MG MILLIGRAM(S), DAILY DOSE
     Route: 042
     Dates: end: 20140902
  4. HANP [Concomitant]
     Active Substance: CARPERITIDE
     Indication: CARDIAC FAILURE
     Dosage: 0.025 UG/KG/MIN, DAILY DOSE
     Route: 042
     Dates: end: 20140902
  5. UNASYN PD [Concomitant]
     Indication: PNEUMONIA BACTERIAL
     Dosage: 3.0 G GRAM(S), DAILY DOSE
     Route: 041
     Dates: end: 20140829

REACTIONS (1)
  - Interstitial lung disease [Fatal]
